FAERS Safety Report 15522828 (Version 1)
Quarter: 2018Q4

REPORT INFORMATION
  Report Type: Spontaneous
  Country: US (occurrence: US)
  Receive Date: 20181014
  Receipt Date: 20181014
  Transmission Date: 20190205
  Serious: Yes (Other)
  Sender: FDA-Public Use
  Company Number: None

PATIENT
  Age: 63 Year
  Sex: Female
  Weight: 85.5 kg

DRUGS (11)
  1. MELOXICAM. [Concomitant]
     Active Substance: MELOXICAM
  2. IBUPROFEN. [Concomitant]
     Active Substance: IBUPROFEN
  3. AMALODIPINE [Concomitant]
  4. TYLENOL [Concomitant]
     Active Substance: ACETAMINOPHEN
  5. GADODIAMIDE (GADOLINIUM-CONTAINING CONTRAST AGENT) [Suspect]
     Active Substance: GADODIAMIDE
     Indication: SPINAL DISORDER
     Dosage: ?          OTHER FREQUENCY:ONE TIME DOSE;?
     Route: 042
     Dates: start: 20150318, end: 20180318
  6. GADODIAMIDE (GADOLINIUM-CONTAINING CONTRAST AGENT) [Suspect]
     Active Substance: GADODIAMIDE
     Indication: INJURY
     Dosage: ?          OTHER FREQUENCY:ONE TIME DOSE;?
     Route: 042
     Dates: start: 20150318, end: 20180318
  7. METFORMIN [Concomitant]
     Active Substance: METFORMIN HYDROCHLORIDE
  8. SPIRONOLACTONE. [Concomitant]
     Active Substance: SPIRONOLACTONE
  9. MULTIPLE VITAMINS [Concomitant]
     Active Substance: VITAMINS
  10. CYCLOBENZAPRINE. [Concomitant]
     Active Substance: CYCLOBENZAPRINE
  11. COLCHICINE. [Concomitant]
     Active Substance: COLCHICINE

REACTIONS (3)
  - Pain [None]
  - Pain in extremity [None]
  - Joint stiffness [None]

NARRATIVE: CASE EVENT DATE: 20150701
